FAERS Safety Report 17358706 (Version 1)
Quarter: 2020Q1

REPORT INFORMATION
  Report Type: Report from Study
  Country: DE (occurrence: DE)
  Receive Date: 20200201
  Receipt Date: 20200201
  Transmission Date: 20200409
  Serious: Yes (Other)
  Sender: FDA-Public Use
  Company Number: PHHY2019DE056173

PATIENT
  Sex: Male

DRUGS (8)
  1. GILENYA [Suspect]
     Active Substance: FINGOLIMOD HYDROCHLORIDE
     Indication: MULTIPLE SCLEROSIS
     Dosage: 0.5 MG, UNK
     Route: 048
     Dates: start: 20170822
  2. PANTOPRAZOLE SODIUM SESQUIHYDRATE [Concomitant]
     Active Substance: PANTOPRAZOLE SODIUM
     Indication: PROPHYLAXIS AGAINST GASTROINTESTINAL ULCER
     Dosage: AS NEEDED
     Route: 065
     Dates: start: 20170815
  3. COLECALCIFEROL [Concomitant]
     Active Substance: CHOLECALCIFEROL
     Dosage: 20 IU, QMO
     Route: 065
     Dates: start: 30190725
  4. PREDNISOLONE. [Concomitant]
     Active Substance: PREDNISOLONE
     Indication: COLITIS ULCERATIVE
     Dosage: UNK
     Route: 065
     Dates: start: 20170815
  5. DIMETHYLPOLYSILOXANE [Concomitant]
     Indication: PROCTITIS ULCERATIVE
     Dosage: UNK
     Route: 065
     Dates: start: 20160315
  6. MESALAZINE [Concomitant]
     Active Substance: MESALAMINE
     Indication: PROCTITIS ULCERATIVE
     Dosage: 1 G, TID
     Route: 065
     Dates: start: 20150624
  7. SIMETHICONE (DIMETHICONE) [Concomitant]
     Active Substance: DIMETHICONE
     Indication: COLITIS ULCERATIVE
     Dosage: UNK
     Route: 065
     Dates: start: 20170815
  8. COLECALCIFEROL [Concomitant]
     Active Substance: CHOLECALCIFEROL
     Indication: VITAMIN D DEFICIENCY
     Dosage: 20.000 IU, QW
     Route: 065
     Dates: start: 20140314, end: 20190725

REACTIONS (5)
  - Heart rate increased [Unknown]
  - Heart rate increased [Recovered/Resolved]
  - Infection [Not Recovered/Not Resolved]
  - Back pain [Unknown]
  - Spondylitis [Unknown]

NARRATIVE: CASE EVENT DATE: 20180707
